APPROVED DRUG PRODUCT: CHLORZOXAZONE
Active Ingredient: CHLORZOXAZONE
Strength: 500MG
Dosage Form/Route: TABLET;ORAL
Application: A210961 | Product #001 | TE Code: AA
Applicant: SENORES PHARMACEUTICALS INC
Approved: Jan 22, 2024 | RLD: No | RS: No | Type: RX